FAERS Safety Report 18793555 (Version 1)
Quarter: 2021Q1

REPORT INFORMATION
  Report Type: Spontaneous
  Country: CH (occurrence: CH)
  Receive Date: 20210127
  Receipt Date: 20210127
  Transmission Date: 20210419
  Serious: Yes (Hospitalization)
  Sender: FDA-Public Use
  Company Number: CH-PFIZER INC-2021039192

PATIENT
  Age: 58 Year
  Sex: Male
  Weight: 110 kg

DRUGS (7)
  1. XARELTO [Suspect]
     Active Substance: RIVAROXABAN
     Indication: DEEP VEIN THROMBOSIS
     Dosage: 20 MG, 1X/DAY
     Route: 048
  2. CLINDAMYCIN. [Suspect]
     Active Substance: CLINDAMYCIN
     Indication: ERYSIPELAS
     Dosage: 600 MG, 3X/DAY
     Route: 042
     Dates: start: 20191015, end: 20191021
  3. DAFALGAN [Suspect]
     Active Substance: ACETAMINOPHEN
     Dosage: 4 SEPARATED DOSES
     Route: 048
     Dates: start: 20191021, end: 20200123
  4. CLINDAMYCIN. [Suspect]
     Active Substance: CLINDAMYCIN
     Indication: ERYSIPELAS
     Dosage: 600 MG, 3X/DAY
     Route: 048
     Dates: start: 20191021, end: 20191027
  5. CEFEPIME [Suspect]
     Active Substance: CEFEPIME HYDROCHLORIDE
     Indication: ERYSIPELAS
     Dosage: 2 G, 3X/DAY
     Route: 042
     Dates: start: 20191015, end: 20191021
  6. TAVANIC [Suspect]
     Active Substance: LEVOFLOXACIN
     Dosage: 500 MG, 2X/DAY
     Route: 048
     Dates: start: 20191021, end: 20191027
  7. SERALIN MEPHA [Suspect]
     Active Substance: SERTRALINE HYDROCHLORIDE
     Indication: DEPRESSION
     Dosage: 50 MG, 1X/DAY
     Route: 048
     Dates: end: 20200213

REACTIONS (2)
  - Blood immunoglobulin M increased [Unknown]
  - Liver disorder [Recovering/Resolving]

NARRATIVE: CASE EVENT DATE: 20200123
